FAERS Safety Report 7940650-9 (Version None)
Quarter: 2011Q4

REPORT INFORMATION
  Report Type: 
  Country: None (occurrence: None)
  Receive Date: 20111114
  Receipt Date: 20101216
  Transmission Date: 20120403
  Serious: Yes (Life-Threatening, Hospitalization, Other)
  Sender: FDA-Public Use
  Company Number: 2010S1001796

PATIENT
  Age: 30 Year
  Sex: Female
  Weight: 89.4 kg

DRUGS (12)
  1. HYDRALAZINE HCL [Concomitant]
  2. VANCOMYCIN [Concomitant]
  3. AMLODIPINE [Concomitant]
  4. METOCLOPRAMIDE [Concomitant]
  5. ONDANSETRON [Concomitant]
  6. CUBICIN [Suspect]
     Indication: BACTERAEMIA
     Dosage: 6 MG/KG;Q24H;
  7. PROMETHAZINE [Concomitant]
  8. ALBUTEROL SULFATE AUTOHALER [Concomitant]
  9. INSULIN GLARGINE [Concomitant]
  10. CIPROFLOXACIN [Concomitant]
  11. HEPARIN [Concomitant]
  12. INSULIN LISPRO [Concomitant]

REACTIONS (1)
  - EOSINOPHILIC PNEUMONIA [None]
